FAERS Safety Report 4401052-5 (Version None)
Quarter: 2004Q3

REPORT INFORMATION
  Report Type: 
  Country: None (occurrence: None)
  Receive Date: 20040907
  Receipt Date: 20031008
  Transmission Date: 20050211
  Serious: No
  Sender: FDA-Public Use
  Company Number: US-BRISTOL-MYERS SQUIBB COMPANY-12406740

PATIENT
  Sex: Female
  Weight: 82 kg

DRUGS (5)
  1. COUMADIN [Suspect]
     Indication: HEART VALVE REPLACEMENT
     Dosage: DOSE INCREASED TO 10 MG/DAY ALTERNATED WITH 7.5 MG/DAY, THEN DECREASED BACK TO 5 MG/DAY.
     Route: 048
     Dates: start: 19950101
  2. THYROID TAB [Concomitant]
  3. LANOXIN [Concomitant]
     Dosage: DOSE: 0.125 ALTERNATED WITH .25 MG DAILY.
     Dates: start: 19950101
  4. TRIAMTERENE AND HYDROCHLOROTHIAZIDE [Concomitant]
  5. VITAMINS + HERBS [Concomitant]

REACTIONS (4)
  - ASTHENIA [None]
  - CONTUSION [None]
  - FATIGUE [None]
  - PROTHROMBIN TIME SHORTENED [None]
